FAERS Safety Report 16565622 (Version 1)
Quarter: 2019Q3

REPORT INFORMATION
  Report Type: Spontaneous
  Country: GB (occurrence: GB)
  Receive Date: 20190712
  Receipt Date: 20190712
  Transmission Date: 20191004
  Serious: Yes (Other)
  Sender: FDA-Public Use
  Company Number: GB-TEVA-2019-GB-1074964

PATIENT
  Age: 86 Year
  Sex: Male
  Weight: 54 kg

DRUGS (11)
  1. IBUPROFEN. [Concomitant]
     Active Substance: IBUPROFEN
     Dosage: 3 DOSAGE FORMS DAILY; APPLY.
     Dates: start: 20190318, end: 20190420
  2. PERINDOPRIL TERT-BUTYLAMINE [Concomitant]
     Active Substance: PERINDOPRIL ERBUMINE
     Dosage: 1 DOSAGE FORMS DAILY;
     Dates: start: 20180406
  3. BIMATOPROST. [Concomitant]
     Active Substance: BIMATOPROST
     Dosage: 2 GTT DAILY; ONE DROP IN BOTH EYES AT NIGHT.
     Route: 047
     Dates: start: 20131105
  4. DEGARELIX [Concomitant]
     Active Substance: DEGARELIX
     Dosage: 80 MILLIGRAM
     Dates: start: 20171017
  5. COLCHICINE. [Concomitant]
     Active Substance: COLCHICINE
     Dosage: 3 DOSAGE FORMS DAILY;
     Dates: start: 20190318, end: 20190326
  6. EPLERENONE. [Concomitant]
     Active Substance: EPLERENONE
     Dosage: 1 DOSAGE FORMS DAILY;
     Dates: start: 20171121
  7. LEVOTHYROXINE. [Concomitant]
     Active Substance: LEVOTHYROXINE
     Dosage: 1 DOSAGE FORMS DAILY;
     Dates: start: 20130415
  8. CALCIUM CARBONATE. [Concomitant]
     Active Substance: CALCIUM CARBONATE
     Dosage: 2 DOSAGE FORMS DAILY;
     Dates: start: 20140220
  9. ALENDRONIC ACID [Suspect]
     Active Substance: ALENDRONIC ACID
     Dosage: 70 MILLIGRAM
     Dates: start: 20151104
  10. FUROSEMIDE. [Concomitant]
     Active Substance: FUROSEMIDE
     Dosage: 1 DOSAGE FORMS DAILY;
     Dates: start: 20171108
  11. FOLIC ACID. [Concomitant]
     Active Substance: FOLIC ACID
     Dosage: 1 DOSAGE FORMS DAILY;
     Dates: start: 20171213

REACTIONS (1)
  - Osteonecrosis [Recovering/Resolving]

NARRATIVE: CASE EVENT DATE: 20190614
